FAERS Safety Report 8840946 (Version 3)
Quarter: 2013Q1

REPORT INFORMATION
  Report Type: Spontaneous
  Country: US (occurrence: US)
  Receive Date: 20121015
  Receipt Date: 20130110
  Transmission Date: 20140127
  Serious: Yes (Hospitalization, Other)
  Sender: FDA-Public Use
  Company Number: US-VERTEX PHARMACEUTICAL INC.-2012-022609

PATIENT
  Sex: Female

DRUGS (7)
  1. INCIVEK [Suspect]
     Indication: HEPATITIS C
     Dosage: 750 MG, TID
     Route: 048
     Dates: start: 20120802, end: 20121004
  2. PEGASYS [Suspect]
     Indication: HEPATITIS C
     Dosage: 180 ?G, UNK
     Dates: start: 20120802
  3. PEGASYS [Suspect]
     Dosage: 135 ?G, UNK
     Dates: start: 20120816
  4. PEGASYS [Suspect]
     Dosage: 90 ?G, UNK
     Dates: start: 20120830
  5. PEGASYS [Suspect]
     Dosage: 135 ?G, UNK
     Dates: start: 20120907
  6. PEGASYS [Suspect]
     Dosage: 90 ?G, UNK
     Dates: start: 20120921, end: 20121004
  7. RIBAVIRIN [Suspect]
     Indication: HEPATITIS C
     Dosage: 400/600
     Dates: start: 20120802, end: 20121004

REACTIONS (3)
  - Cellulitis [Unknown]
  - Neutropenia [Unknown]
  - Anaemia [Unknown]
